FAERS Safety Report 4956547-2 (Version None)
Quarter: 2006Q1

REPORT INFORMATION
  Report Type: 
  Country: None (occurrence: None)
  Receive Date: 20060329
  Receipt Date: 20051220
  Transmission Date: 20060701
  Serious: Yes (Death, Hospitalization)
  Sender: FDA-Public Use
  Company Number: US-MERCK-0512USA03244

PATIENT
  Age: 56 Year
  Sex: Female

DRUGS (2)
  1. VIOXX [Suspect]
     Indication: ARTHRALGIA
     Route: 048
     Dates: start: 19990601, end: 20031207
  2. DIOVAN [Concomitant]
     Indication: DIABETES MELLITUS
     Route: 065
     Dates: start: 20000101, end: 20030101

REACTIONS (3)
  - ARTHROPATHY [None]
  - CARDIAC ARREST [None]
  - ROTATOR CUFF SYNDROME [None]
